FAERS Safety Report 11138239 (Version 2)
Quarter: 2015Q3

REPORT INFORMATION
  Report Type: Spontaneous
  Country: TR (occurrence: TR)
  Receive Date: 20150526
  Receipt Date: 20150716
  Transmission Date: 20151125
  Serious: No
  Sender: FDA-Public Use
  Company Number: PHHY2015TR063133

PATIENT
  Age: 27 Year
  Sex: Female

DRUGS (1)
  1. LAMISIL [Suspect]
     Active Substance: TERBINAFINE HYDROCHLORIDE
     Indication: PRODUCT USED FOR UNKNOWN INDICATION
     Dosage: 15 G, DAILY
     Route: 065

REACTIONS (3)
  - Exposure during breast feeding [Unknown]
  - Incorrect product formulation administered [Unknown]
  - Drug ineffective [Unknown]
